FAERS Safety Report 23378455 (Version 1)
Quarter: 2024Q1

REPORT INFORMATION
  Report Type: Spontaneous
  Country: FR (occurrence: None)
  Receive Date: 20240108
  Receipt Date: 20240108
  Transmission Date: 20240409
  Serious: Yes (Hospitalization)
  Sender: FDA-Public Use
  Company Number: 2023A283701

PATIENT
  Age: 74 Year
  Sex: Male
  Weight: 60 kg

DRUGS (9)
  1. OMEPRAZOLE [Suspect]
     Active Substance: OMEPRAZOLE
     Indication: Product used for unknown indication
     Route: 048
     Dates: end: 20231123
  2. AMIODARONE [Suspect]
     Active Substance: AMIODARONE
     Indication: Atrial fibrillation
     Route: 048
     Dates: start: 202001, end: 20231123
  3. BROMAZEPAM [Suspect]
     Active Substance: BROMAZEPAM
  4. DULOXETINE HYDROCHLORIDE [Suspect]
     Active Substance: DULOXETINE HYDROCHLORIDE
     Indication: Product used for unknown indication
     Route: 048
     Dates: start: 202001, end: 20231123
  5. CELLCEPT [Concomitant]
     Active Substance: MYCOPHENOLATE MOFETIL
  6. LYRICA [Concomitant]
     Active Substance: PREGABALIN
  7. ELIQUIS [Concomitant]
     Active Substance: APIXABAN
  8. BISOPROLOL [Concomitant]
     Active Substance: BISOPROLOL\BISOPROLOL FUMARATE
     Indication: Bradycardia
  9. CALCIDOSE [Concomitant]

REACTIONS (1)
  - Idiopathic interstitial pneumonia [Recovering/Resolving]

NARRATIVE: CASE EVENT DATE: 20231101
